FAERS Safety Report 15339191 (Version 1)
Quarter: 2018Q3

REPORT INFORMATION
  Report Type: Spontaneous
  Country: CH (occurrence: CH)
  Receive Date: 20180831
  Receipt Date: 20180831
  Transmission Date: 20181010
  Serious: Yes (Hospitalization)
  Sender: FDA-Public Use
  Company Number: CH-TEVA-2018-CH-949027

PATIENT
  Age: 92 Year
  Sex: Female
  Weight: 68.2 kg

DRUGS (7)
  1. SINTROM [Concomitant]
     Active Substance: ACENOCOUMAROL
     Dosage: DOSAGE ACCORDING TO SCHEME
     Route: 048
  2. BELOC ZOK [Concomitant]
     Active Substance: METOPROLOL SUCCINATE
     Route: 048
  3. METFORMIN [Suspect]
     Active Substance: METFORMIN HYDROCHLORIDE
     Dosage: THERAPY START DATE NOT KNOWN
     Route: 048
     Dates: end: 20180804
  4. CIPROFLOXACIN SPIRIG HC [Suspect]
     Active Substance: CIPROFLOXACIN HYDROCHLORIDE
     Dosage: POSOLOGY NOT KNOWN
     Route: 048
     Dates: start: 20180731, end: 20180804
  5. ZANIDIP [Concomitant]
     Active Substance: LERCANIDIPINE HYDROCHLORIDE
     Route: 048
  6. COSAAR PLUS [Concomitant]
     Active Substance: HYDROCHLOROTHIAZIDE\LOSARTAN
     Dosage: COSAAR PLUS 100/12.5 MG
     Route: 048
  7. CRESTOR [Concomitant]
     Active Substance: ROSUVASTATIN CALCIUM
     Route: 048

REACTIONS (2)
  - Metabolic acidosis [Recovered/Resolved]
  - Acute kidney injury [Recovered/Resolved]

NARRATIVE: CASE EVENT DATE: 20180804
